FAERS Safety Report 8580204-7 (Version None)
Quarter: 2012Q3

REPORT INFORMATION
  Report Type: 
  Country: None (occurrence: None)
  Receive Date: 20120808
  Receipt Date: 20070924
  Transmission Date: 20120928
  Serious: Yes (Other)
  Sender: FDA-Public Use
  Company Number: CO-PFIZER INC-2012189290

PATIENT
  Age: 72 Year
  Sex: Female

DRUGS (5)
  1. NORVASC [Suspect]
     Dosage: 10 MG, 1X/DAY
  2. GLIBENCLAMIDE [Concomitant]
     Dosage: 5 MG, 2X/DAY
  3. LIPITOR [Suspect]
     Dosage: 20 MG, 1X/DAY
  4. INSULIN ZINC PROTAMINE INJECTION [Concomitant]
     Dosage: 80-100 IU/ML, 2X/DAY
  5. QUINAPRIL AND HYDROCHLOROTHIAZIDE [Suspect]
     Dosage: 20/12.5 MG HCT, 1X/DAY

REACTIONS (3)
  - HYPERTENSIVE EMERGENCY [None]
  - ASTHENIA [None]
  - BONE PAIN [None]
